FAERS Safety Report 8923288 (Version 6)
Quarter: 2014Q1

REPORT INFORMATION
  Report Type: Report from Study
  Country: AU (occurrence: AU)
  Receive Date: 20121124
  Receipt Date: 20140203
  Transmission Date: 20141002
  Serious: Yes (Death, Hospitalization)
  Sender: FDA-Public Use
  Company Number: AU-SANOFI-AVENTIS-2012SA081714

PATIENT
  Age: 82 Year
  Sex: Male
  Weight: 59.6 kg

DRUGS (7)
  1. OXALIPLATIN [Suspect]
     Indication: RECTAL CANCER
     Route: 042
     Dates: start: 20120924, end: 20121030
  2. BEVACIZUMAB [Suspect]
     Indication: RECTAL CANCER
     Route: 042
     Dates: start: 20120924, end: 20121030
  3. CAPECITABINE [Suspect]
     Indication: RECTAL CANCER
     Route: 048
     Dates: start: 20120924, end: 20121030
  4. LOPERAMIDE [Concomitant]
     Dates: start: 20120924
  5. LOPERAMIDE [Concomitant]
     Dates: start: 20120814
  6. PERINDOPRIL [Concomitant]
     Dates: start: 20120924
  7. SOMAC [Concomitant]
     Dates: start: 201207

REACTIONS (2)
  - Renal failure acute [Fatal]
  - Pulmonary embolism [Unknown]
